FAERS Safety Report 16222668 (Version 1)
Quarter: 2019Q2

REPORT INFORMATION
  Report Type: Spontaneous
  Country: US (occurrence: US)
  Receive Date: 20190422
  Receipt Date: 20190422
  Transmission Date: 20190711
  Serious: No
  Sender: FDA-Public Use
  Company Number: US-MYLANLABS-2019M1031049

PATIENT
  Sex: Female
  Weight: 56 kg

DRUGS (1)
  1. DOXEPIN HYDROCHLORIDE CAPSULES, USP [Suspect]
     Active Substance: DOXEPIN HYDROCHLORIDE
     Indication: INSOMNIA
     Dosage: UNK
     Route: 048

REACTIONS (3)
  - Allergic reaction to excipient [Unknown]
  - Rash pruritic [Not Recovered/Not Resolved]
  - Incorrect product administration duration [Not Recovered/Not Resolved]
